FAERS Safety Report 9748195 (Version 2)
Quarter: 2013Q4

REPORT INFORMATION
  Report Type: Spontaneous
  Country: US (occurrence: US)
  Receive Date: 20131212
  Receipt Date: 20131217
  Transmission Date: 20140711
  Serious: No
  Sender: FDA-Public Use
  Company Number: US-PFIZER INC-2013352654

PATIENT
  Age: 70 Year
  Sex: Female
  Weight: 77.55 kg

DRUGS (3)
  1. CELEBREX [Suspect]
     Indication: RHEUMATOID ARTHRITIS
     Dosage: 200 MG, DAILY
     Dates: end: 2013
  2. NAPROXEN SODIUM [Suspect]
     Indication: RHEUMATOID ARTHRITIS
     Dosage: 660 MG (220MG THREE TABLETS), DAILY
     Dates: start: 2013
  3. NATURE-THROID [Concomitant]
     Indication: AUTOIMMUNE THYROIDITIS
     Dosage: 65 MG, DAILY

REACTIONS (9)
  - Intentional drug misuse [Unknown]
  - Pain [Unknown]
  - Arthralgia [Unknown]
  - Joint swelling [Unknown]
  - Pain in extremity [Unknown]
  - Movement disorder [Unknown]
  - Drug effect decreased [Unknown]
  - Osteoarthritis [Unknown]
  - Drug effect incomplete [Unknown]
